FAERS Safety Report 23216404 (Version 1)
Quarter: 2023Q4

REPORT INFORMATION
  Report Type: Spontaneous
  Country: JP (occurrence: JP)
  Receive Date: 20231122
  Receipt Date: 20231122
  Transmission Date: 20240110
  Serious: Yes (Other)
  Sender: FDA-Public Use
  Company Number: JP-CHUGAI-2023040783

PATIENT
  Age: 8 Decade

DRUGS (1)
  1. VABYSMO [Suspect]
     Active Substance: FARICIMAB\FARICIMAB-SVOA
     Indication: Neovascular age-related macular degeneration
     Dosage: 120MG/ML
     Route: 050

REACTIONS (2)
  - Polypoidal choroidal vasculopathy [Unknown]
  - Choroidal haemorrhage [Unknown]
